FAERS Safety Report 4920536-4 (Version None)
Quarter: 2006Q1

REPORT INFORMATION
  Report Type: 
  Country: None (occurrence: None)
  Receive Date: 20060223
  Receipt Date: 20060213
  Transmission Date: 20060701
  Serious: Yes (Hospitalization)
  Sender: FDA-Public Use
  Company Number: GB-BRISTOL-MYERS SQUIBB COMPANY-13280037

PATIENT
  Age: 54 Year
  Sex: Female
  Weight: 92 kg

DRUGS (4)
  1. MEGACE [Suspect]
     Indication: HOT FLUSH
     Route: 048
     Dates: start: 20060119
  2. WARFARIN SODIUM [Interacting]
     Indication: DEEP VEIN THROMBOSIS
     Dates: start: 20060110, end: 20060126
  3. SERTRALINE [Concomitant]
     Indication: DEPRESSION
     Route: 048
  4. TAMOXIFEN CITRATE [Concomitant]
     Indication: HOT FLUSH
     Route: 048

REACTIONS (2)
  - DRUG INTERACTION [None]
  - INTERNATIONAL NORMALISED RATIO DECREASED [None]
